FAERS Safety Report 8181486-6 (Version None)
Quarter: 2012Q1

REPORT INFORMATION
  Report Type: 
  Country: None (occurrence: None)
  Receive Date: 20120301
  Receipt Date: 20120301
  Transmission Date: 20120608
  Serious: No
  Sender: FDA-Public Use
  Company Number: None

PATIENT
  Sex: Male

DRUGS (2)
  1. ENBREL [Suspect]
  2. ENBREL [Suspect]
     Indication: RHEUMATOID ARTHRITIS
     Dosage: 25MG TWICE WEEKLY SQ
     Route: 058
     Dates: start: 20090609

REACTIONS (7)
  - NAUSEA [None]
  - DIZZINESS [None]
  - CHEST DISCOMFORT [None]
  - DYSPHONIA [None]
  - BURNING SENSATION [None]
  - NASOPHARYNGITIS [None]
  - DEPRESSED LEVEL OF CONSCIOUSNESS [None]
